FAERS Safety Report 23973945 (Version 7)
Quarter: 2025Q4

REPORT INFORMATION
  Report Type: Report from Study
  Country: GB (occurrence: GB)
  Receive Date: 20240613
  Receipt Date: 20251013
  Transmission Date: 20260118
  Serious: Yes (Hospitalization)
  Sender: AMGEN
  Company Number: GB-Vifor (International) Inc.-VIT-2024-05032

PATIENT
  Age: 51 Year
  Sex: Female
  Weight: 86.6 kg

DRUGS (51)
  1. AVACOPAN [Suspect]
     Active Substance: AVACOPAN
     Indication: Anti-neutrophil cytoplasmic antibody positive vasculitis
     Dosage: 30 MG, BID
     Route: 048
     Dates: start: 20240531, end: 20240602
  2. AVACOPAN [Suspect]
     Active Substance: AVACOPAN
     Dosage: 30 MG, BID
     Route: 048
     Dates: start: 20240611
  3. HYDROCORTISONE [Concomitant]
     Active Substance: HYDROCORTISONE
     Indication: Adrenal insufficiency
     Dosage: 10 MG, OD
     Route: 048
     Dates: start: 202405, end: 20240601
  4. HYDROCORTISONE [Concomitant]
     Active Substance: HYDROCORTISONE
     Dosage: 5,MG,BID
     Route: 048
     Dates: start: 202405, end: 20240601
  5. HYDROCORTISONE [Concomitant]
     Active Substance: HYDROCORTISONE
     Dosage: 100 MG, BID
     Route: 048
     Dates: start: 20240602, end: 20240603
  6. HYDROCORTISONE [Concomitant]
     Active Substance: HYDROCORTISONE
     Dosage: 5 MG, OD
     Route: 048
     Dates: start: 20240130, end: 20240130
  7. HYDROCORTISONE [Concomitant]
     Active Substance: HYDROCORTISONE
     Dosage: 15 MG, OD
     Route: 048
     Dates: start: 20240131, end: 20240131
  8. HYDROCORTISONE [Concomitant]
     Active Substance: HYDROCORTISONE
     Dosage: 25 MG, OD
     Route: 048
     Dates: start: 20240201, end: 20240201
  9. HYDROCORTISONE [Concomitant]
     Active Substance: HYDROCORTISONE
     Dosage: 40 MG, OD
     Route: 048
     Dates: start: 20240202, end: 20240203
  10. HYDROCORTISONE [Concomitant]
     Active Substance: HYDROCORTISONE
     Dosage: 20 MG, OD
     Route: 048
     Dates: start: 20240205, end: 20240205
  11. HYDROCORTISONE [Concomitant]
     Active Substance: HYDROCORTISONE
     Dosage: 10 MG, OD
     Route: 048
     Dates: start: 20240206, end: 202404
  12. HYDROCORTISONE [Concomitant]
     Active Substance: HYDROCORTISONE
     Dosage: 5 MG, BID
     Route: 048
     Dates: start: 20240206, end: 202404
  13. HYDROCORTISONE [Concomitant]
     Active Substance: HYDROCORTISONE
     Dosage: 5 MG, BID
     Route: 048
     Dates: start: 20240605
  14. HYDROCORTISONE [Concomitant]
     Active Substance: HYDROCORTISONE
     Dosage: 100 MG, SINGLE
     Route: 040
     Dates: start: 20240602, end: 20240603
  15. HYDROCORTISONE [Concomitant]
     Active Substance: HYDROCORTISONE
     Dosage: 30 MG, OD
     Route: 048
     Dates: start: 20240603, end: 20240604
  16. HYDROCORTISONE [Concomitant]
     Active Substance: HYDROCORTISONE
     Dosage: 15 MG, OD
     Route: 048
     Dates: start: 20241106, end: 20241113
  17. HYDROCORTISONE [Concomitant]
     Active Substance: HYDROCORTISONE
     Dosage: 10 MG, OD
     Route: 048
     Dates: start: 20241113, end: 20250117
  18. HYDROCORTISONE [Concomitant]
     Active Substance: HYDROCORTISONE
     Dosage: 20 MG, OD
     Route: 048
     Dates: start: 20240605, end: 20241105
  19. RITUXIMAB [Concomitant]
     Active Substance: RITUXIMAB
     Indication: Anti-neutrophil cytoplasmic antibody positive vasculitis
     Dosage: 500 MG, SINGLE (TWO INFUSIONS IN TOT)
     Route: 040
     Dates: start: 20240423, end: 20240423
  20. RITUXIMAB [Concomitant]
     Active Substance: RITUXIMAB
     Dosage: 500 MG, SINGLE
     Route: 040
     Dates: start: 20240614, end: 20240614
  21. RITUXIMAB [Concomitant]
     Active Substance: RITUXIMAB
     Dosage: 500 MG, SINGLE
     Route: 040
     Dates: start: 20241210, end: 20241210
  22. METHYLPREDNISOLONE [Concomitant]
     Active Substance: METHYLPREDNISOLONE
     Indication: Anti-neutrophil cytoplasmic antibody positive vasculitis
     Dosage: 500 MG, SINGLE
     Route: 040
     Dates: start: 20240131, end: 20240131
  23. METHYLPREDNISOLONE [Concomitant]
     Active Substance: METHYLPREDNISOLONE
     Indication: Prophylaxis
     Dosage: 100 MG, OD
     Route: 040
     Dates: start: 20240203, end: 20240204
  24. METHYLPREDNISOLONE [Concomitant]
     Active Substance: METHYLPREDNISOLONE
     Dosage: 100 MG, SINGLE
     Route: 040
     Dates: start: 20240423, end: 20240423
  25. METHYLPREDNISOLONE [Concomitant]
     Active Substance: METHYLPREDNISOLONE
     Dosage: 100 MG, SINGLE
     Route: 040
     Dates: start: 20240614, end: 20240614
  26. METHYLPREDNISOLONE [Concomitant]
     Active Substance: METHYLPREDNISOLONE
     Dosage: 100 MG, SINGLE
     Route: 040
     Dates: start: 20241210, end: 20241210
  27. METHYLPREDNISOLONE ACETATE [Concomitant]
     Active Substance: METHYLPREDNISOLONE ACETATE
     Indication: Anti-neutrophil cytoplasmic antibody positive vasculitis
     Dosage: 80 MG, EVERY 4 WEEK
     Route: 030
     Dates: start: 20170825, end: 202404
  28. METHOTREXATE [Concomitant]
     Active Substance: METHOTREXATE
     Indication: Anti-neutrophil cytoplasmic antibody positive vasculitis
     Dosage: 20 MG, QW
     Route: 058
     Dates: start: 20230807, end: 20240415
  29. PREDNISOLONE [Concomitant]
     Active Substance: PREDNISOLONE
     Indication: Anti-neutrophil cytoplasmic antibody positive vasculitis
     Dosage: 20 MG, OD
     Route: 048
     Dates: start: 20240416, end: 202404
  30. PREDNISOLONE [Concomitant]
     Active Substance: PREDNISOLONE
     Dosage: 5 MG, OD
     Route: 048
     Dates: start: 20240906, end: 20240912
  31. PREDNISOLONE [Concomitant]
     Active Substance: PREDNISOLONE
     Dosage: 10 MG, OD
     Route: 048
     Dates: start: 20240903, end: 20240905
  32. PREDNISOLONE [Concomitant]
     Active Substance: PREDNISOLONE
     Dosage: 4 MG, OD
     Route: 048
     Dates: start: 20240912, end: 20240926
  33. PREDNISOLONE [Concomitant]
     Active Substance: PREDNISOLONE
     Dosage: 3 MG, OD
     Route: 048
     Dates: start: 20240927, end: 20241010
  34. ASPIRIN [Concomitant]
     Active Substance: ASPIRIN
     Indication: Prophylaxis
     Dosage: 75 MG, QD
     Route: 048
     Dates: start: 20231206
  35. BUDESONIDE [Concomitant]
     Active Substance: BUDESONIDE
     Indication: Anti-neutrophil cytoplasmic antibody positive vasculitis
     Dosage: 1 MG, QD
     Route: 065
     Dates: start: 20240226
  36. CALCIUM CARBONATE\CHOLECALCIFEROL [Concomitant]
     Active Substance: CALCIUM CARBONATE\CHOLECALCIFEROL
     Indication: Prophylaxis
     Dosage: 1.5 GR + 10 MCG
     Route: 048
     Dates: start: 20161205
  37. COTRIMOXAZOLE [Concomitant]
     Active Substance: SULFAMETHOXAZOLE\TRIMETHOPRIM
     Indication: Infection prophylaxis
     Dosage: 480 MG, TIW
     Route: 048
     Dates: start: 20240602
  38. DERMOL [Concomitant]
     Active Substance: BENZALKONIUM CHLORIDE\CHLORHEXIDINE HYDROCHLORIDE\ISOPROPYL MYRISTATE\PARAFFIN
     Indication: Dry skin
     Dosage: 1 DF, QD
     Route: 061
     Dates: start: 20240220
  39. DOCUSATE [Concomitant]
     Active Substance: DOCUSATE
     Indication: Constipation
     Dosage: 100 MG
     Route: 048
     Dates: start: 20240401
  40. FOLIC ACID [Concomitant]
     Active Substance: FOLIC ACID
     Indication: Anaemia
     Dosage: 5 MG, QD
     Route: 048
     Dates: start: 20140708
  41. GABAPENTIN [Concomitant]
     Active Substance: GABAPENTIN
     Indication: Pain
     Dosage: 100 MG, BID
     Route: 048
     Dates: start: 20220408
  42. LANSOPRAZOLE [Concomitant]
     Active Substance: LANSOPRAZOLE
     Indication: Gastrointestinal disorder prophylaxis
     Dosage: 30 MG, QD
     Route: 048
     Dates: start: 20240208
  43. LEVOFLOXACIN [Concomitant]
     Active Substance: LEVOFLOXACIN
     Indication: Pneumonia
     Dosage: 500 MG, BID
     Route: 048
     Dates: start: 20240602, end: 20240603
  44. LEVOFLOXACIN [Concomitant]
     Active Substance: LEVOFLOXACIN
     Dosage: 500,MG,BID
     Route: 048
     Dates: start: 20240604, end: 20240610
  45. AMLODIPINE [Concomitant]
     Active Substance: AMLODIPINE BESYLATE
     Indication: Hypertension
     Dosage: 5 MG, QD
     Route: 048
     Dates: start: 202405
  46. RAMIPRIL [Concomitant]
     Active Substance: RAMIPRIL
     Indication: Hypertension
     Dosage: 10 MG, QD
     Route: 048
     Dates: start: 20240326
  47. MIRTAZAPINE [Concomitant]
     Active Substance: MIRTAZAPINE
     Indication: Post-traumatic stress disorder
     Dosage: 45,MG,QD
     Route: 048
     Dates: start: 20211129
  48. HYDROXYCHLOROQUINE [Concomitant]
     Active Substance: HYDROXYCHLOROQUINE
     Indication: Anti-neutrophil cytoplasmic antibody positive vasculitis
     Dosage: 200 MG, OD
     Route: 048
     Dates: start: 20240726, end: 20241018
  49. HYDROCORTISONE SODIUM SUCCINATE [Concomitant]
     Active Substance: HYDROCORTISONE SODIUM SUCCINATE
     Indication: Adrenal insufficiency
     Dosage: 20 MG, OD
     Route: 048
     Dates: start: 20240605, end: 20241105
  50. HYDROCORTISONE SODIUM SUCCINATE [Concomitant]
     Active Substance: HYDROCORTISONE SODIUM SUCCINATE
     Dosage: 15 MG, OD
     Route: 048
     Dates: start: 20241106, end: 20241113
  51. HYDROCORTISONE SODIUM SUCCINATE [Concomitant]
     Active Substance: HYDROCORTISONE SODIUM SUCCINATE
     Dosage: 10 MG, OD
     Route: 048
     Dates: start: 20241113, end: 20250117

REACTIONS (6)
  - Pyrexia [Recovered/Resolved]
  - Lower respiratory tract infection [Recovered/Resolved]
  - Lower respiratory tract infection [Recovered/Resolved]
  - Rash [Recovered/Resolved]
  - Pain in extremity [Recovering/Resolving]
  - Arthralgia [Recovering/Resolving]

NARRATIVE: CASE EVENT DATE: 20240602
